FAERS Safety Report 5634653-7 (Version None)
Quarter: 2008Q1

REPORT INFORMATION
  Report Type: 
  Country: None (occurrence: None)
  Receive Date: 20080131
  Receipt Date: 20071001
  Transmission Date: 20080703
  Serious: No
  Sender: FDA-Public Use
  Company Number: PHEH2007US13135

PATIENT

DRUGS (4)
  1. TEKTURNA [Suspect]
     Indication: HYPERTENSION
  2. HYDROCHLOROTHIAZIDE [Suspect]
     Indication: HYPERTENSION
  3. ANGIOTENSIN II ANTAGONISTS (NO INGREDIENTS/SUBSTANCES) [Suspect]
  4. CALCIUM CHANNEL BLOCKERS (NO INGREDIENTS/SUBSTANCES) [Suspect]

REACTIONS (1)
  - HYPERTENSION [None]
